FAERS Safety Report 9040732 (Version 1)
Quarter: 2013Q1

REPORT INFORMATION
  Report Type: Report from Study
  Country: US (occurrence: US)
  Receive Date: 20130129
  Receipt Date: 20130129
  Transmission Date: 20140127
  Serious: No
  Sender: FDA-Public Use
  Company Number: US-ABBOTT-12P-163-0889645-00

PATIENT
  Age: 34 Year
  Sex: Female

DRUGS (1)
  1. HUMIRA 40 MG/ 0.8 ML PRE-FILLED SYRINGE [Suspect]
     Indication: CROHN^S DISEASE
     Dates: start: 20111104

REACTIONS (8)
  - Influenza [Recovering/Resolving]
  - Malaise [Unknown]
  - Pain [Unknown]
  - Headache [None]
  - Pyrexia [Recovering/Resolving]
  - Respiratory tract congestion [None]
  - Oropharyngeal pain [Unknown]
  - Cough [Unknown]
